FAERS Safety Report 5846317-5 (Version None)
Quarter: 2008Q3

REPORT INFORMATION
  Report Type: 
  Country: None (occurrence: None)
  Receive Date: 20080815
  Receipt Date: 20080715
  Transmission Date: 20090109
  Serious: No
  Sender: FDA-Public Use
  Company Number: US-BAYER-200829219NA

PATIENT
  Age: 71 Year
  Sex: Male
  Weight: 112 kg

DRUGS (14)
  1. ULTRAVIST 370 [Suspect]
     Indication: COMPUTERISED TOMOGRAM
     Dosage: TOTAL DAILY DOSE: 100 ML  UNIT DOSE: 500 ML
     Route: 042
     Dates: start: 20080715, end: 20080715
  2. DIOVAN [Concomitant]
     Dosage: TOTAL DAILY DOSE: 160 MG
  3. PLAVIX [Concomitant]
     Dosage: TOTAL DAILY DOSE: 75 MG
  4. RANITIDINE [Concomitant]
     Dosage: TOTAL DAILY DOSE: 150 MG
  5. ZOCOR [Concomitant]
     Dosage: TOTAL DAILY DOSE: 80 MG
  6. ASPIRIN [Concomitant]
     Dosage: TOTAL DAILY DOSE: 81 MG
  7. CENTRUM SILVER [Concomitant]
  8. GLIMEPRIDE [Concomitant]
     Dosage: AS USED: 1 MG
  9. ASCORBIC ACID [Concomitant]
     Dosage: AS USED: 500 MG
  10. METFORMIN HCL [Concomitant]
     Dosage: TOTAL DAILY DOSE: 500 MG
  11. RESEARCH MEDICATION-TRAP STUDY (DIRECT THROMBIN INHIBITOR VS PLACEBO) [Concomitant]
  12. SERTEALINE [Concomitant]
     Dosage: TOTAL DAILY DOSE: 50 MG
  13. METOPROL SUCCER [Concomitant]
  14. GARLIC [Concomitant]

REACTIONS (3)
  - PRURITUS [None]
  - RASH MACULAR [None]
  - URTICARIA [None]
